FAERS Safety Report 7283966-4 (Version None)
Quarter: 2011Q1

REPORT INFORMATION
  Report Type: 
  Country: None (occurrence: None)
  Receive Date: 20110209
  Receipt Date: 20110207
  Transmission Date: 20110831
  Serious: Yes (Other)
  Sender: FDA-Public Use
  Company Number: A0912197A

PATIENT
  Sex: Female

DRUGS (1)
  1. NICOTINE [Suspect]
     Route: 062

REACTIONS (4)
  - SKIN DISORDER [None]
  - SKIN ATROPHY [None]
  - BACK PAIN [None]
  - NECK PAIN [None]
